FAERS Safety Report 12765964 (Version 5)
Quarter: 2017Q1

REPORT INFORMATION
  Report Type: Spontaneous
  Country: JP (occurrence: JP)
  Receive Date: 20160921
  Receipt Date: 20170302
  Transmission Date: 20170428
  Serious: Yes (Hospitalization, Other)
  Sender: FDA-Public Use
  Company Number: JP-GLAXOSMITHKLINE-JP2016JPN136861

PATIENT
  Age: 69 Year
  Sex: Female

DRUGS (7)
  1. TOPINA [Concomitant]
     Active Substance: TOPIRAMATE
     Dosage: 100 MG, 1D
  2. REQUIP [Suspect]
     Active Substance: ROPINIROLE HYDROCHLORIDE
     Dosage: 4 MG, QD
     Route: 048
     Dates: start: 20160908, end: 20160916
  3. ATARAX-P (HYDROXYZINE HYDROCHLORIDE) [Concomitant]
     Dosage: 25 MG, 1D
  4. LAC-B [Concomitant]
     Active Substance: BIFIDOBACTERIUM SPP.
     Indication: GASTROINTESTINAL DISORDER
     Dosage: 3 G, 1D
  5. AKINETON [Concomitant]
     Active Substance: BIPERIDEN HYDROCHLORIDE
     Dosage: 2 MG, UNK
  6. BENZALIN (JAPAN) [Concomitant]
     Active Substance: NITRAZEPAM
     Dosage: 10 MG, 1D
  7. REQUIP [Suspect]
     Active Substance: ROPINIROLE HYDROCHLORIDE
     Indication: PARKINSON^S DISEASE
     Dosage: 2 MG, 1D
     Route: 048
     Dates: start: 20160902, end: 20160907

REACTIONS (4)
  - Snoring [Recovered/Resolved]
  - Sudden onset of sleep [Recovering/Resolving]
  - Loss of consciousness [Recovering/Resolving]
  - Arrhythmia [Unknown]

NARRATIVE: CASE EVENT DATE: 20160906
